FAERS Safety Report 4356291-9 (Version None)
Quarter: 2004Q2

REPORT INFORMATION
  Report Type: 
  Country: None (occurrence: None)
  Receive Date: 20040511
  Receipt Date: 20040511
  Transmission Date: 20050107
  Serious: No
  Sender: FDA-Public Use
  Company Number: None

PATIENT
  Age: 4 Month
  Sex: Male
  Weight: 4.2 kg

DRUGS (1)
  1. TISSUE HOMOGRAFT [Suspect]
     Dates: start: 20040428

REACTIONS (2)
  - GRAFT COMPLICATION [None]
  - STAPHYLOCOCCAL INFECTION [None]
